FAERS Safety Report 5051886-1 (Version None)
Quarter: 2006Q3

REPORT INFORMATION
  Report Type: 
  Country: None (occurrence: None)
  Receive Date: 20060714
  Receipt Date: 20060502
  Transmission Date: 20061208
  Serious: Yes (Disabling, Other)
  Sender: FDA-Public Use
  Company Number: US-BOEHRINGER INGELHEIM PHARMACEUTICALS, INC.-2006-BP-05011BP

PATIENT
  Sex: Male

DRUGS (1)
  1. FLOMAX [Suspect]
     Indication: PROSTATITIS
     Route: 048

REACTIONS (5)
  - BLINDNESS [None]
  - EYE INFECTION STAPHYLOCOCCAL [None]
  - EYE PAIN [None]
  - PROCEDURAL COMPLICATION [None]
  - RETINAL DISORDER [None]
